FAERS Safety Report 15193556 (Version 1)
Quarter: 2018Q3

REPORT INFORMATION
  Report Type: Spontaneous
  Country: US (occurrence: US)
  Receive Date: 20180626
  Receipt Date: 20180626
  Transmission Date: 20181010
  Serious: Yes (Death)
  Sender: FDA-Public Use
  Company Number: None

PATIENT
  Age: 79 Year
  Sex: Female
  Weight: 70.12 kg

DRUGS (4)
  1. 5?FLUOROURACIL (5?FU) [Suspect]
     Active Substance: FLUOROURACIL
     Dates: end: 20180521
  2. ELOXATIN [Suspect]
     Active Substance: OXALIPLATIN
     Dates: end: 20180521
  3. CAMPTOSAR [Suspect]
     Active Substance: IRINOTECAN HYDROCHLORIDE
     Dates: end: 20180521
  4. LEUCOVORIN CALCIUM. [Suspect]
     Active Substance: LEUCOVORIN CALCIUM
     Dates: end: 20180521

REACTIONS (7)
  - Abdominal distension [None]
  - Ileus [None]
  - Abdominal pain [None]
  - Obstruction [None]
  - Pain [None]
  - Nausea [None]
  - Refusal of treatment by patient [None]

NARRATIVE: CASE EVENT DATE: 20180614
